FAERS Safety Report 6077444-8 (Version None)
Quarter: 2009Q1

REPORT INFORMATION
  Report Type: 
  Country: None (occurrence: None)
  Receive Date: 20090213
  Receipt Date: 20081103
  Transmission Date: 20090719
  Serious: No
  Sender: FDA-Public Use
  Company Number: A0754611A

PATIENT
  Sex: Female

DRUGS (2)
  1. TREXIMET [Suspect]
  2. NO CONCURRENT MEDICATION [Concomitant]

REACTIONS (2)
  - CHEST DISCOMFORT [None]
  - HYPERVENTILATION [None]
